FAERS Safety Report 9546801 (Version 1)
Quarter: 2013Q3

REPORT INFORMATION
  Report Type: Report from Study
  Country: JP (occurrence: JP)
  Receive Date: 20130924
  Receipt Date: 20130924
  Transmission Date: 20140515
  Serious: Yes (Other)
  Sender: FDA-Public Use
  Company Number: JP-ROCHE-1272874

PATIENT
  Sex: 0

DRUGS (5)
  1. RITUXIMAB [Suspect]
     Indication: DIFFUSE LARGE B-CELL LYMPHOMA
     Dosage: ON DAY 1
     Route: 042
  2. BENDAMUSTINE [Suspect]
     Indication: DIFFUSE LARGE B-CELL LYMPHOMA
     Dosage: ON DAYS 2 AND 3, OVER 60 MINUTES.
     Route: 042
  3. DEXAMETHASONE [Concomitant]
     Dosage: DAYS 1
     Route: 042
  4. DEXAMETHASONE [Concomitant]
     Dosage: ON DAYS 4 AND 5
     Route: 048
  5. GRANISETRON HYDROCHLORIDE [Concomitant]
     Dosage: DAYS 2 THROUGH 5.
     Route: 065

REACTIONS (23)
  - Neutropenia [Unknown]
  - Thrombocytopenia [Unknown]
  - Anaemia [Unknown]
  - Infection [Unknown]
  - Rash maculo-papular [Unknown]
  - Constipation [Unknown]
  - Dyspnoea [Unknown]
  - Dysphagia [Unknown]
  - Pyrexia [Unknown]
  - Feeling hot [Unknown]
  - Decreased appetite [Unknown]
  - Multi-organ failure [Unknown]
  - Dehydration [Unknown]
  - Tumour pain [Unknown]
  - Headache [Unknown]
  - Major depression [Unknown]
  - Haematuria [Unknown]
  - Respiratory failure [Unknown]
  - Urticaria [Unknown]
  - Hypotension [Unknown]
  - Shock haemorrhagic [Unknown]
  - Myelodysplastic syndrome [Unknown]
  - Myeloid leukaemia [Unknown]
